FAERS Safety Report 13297668 (Version 1)
Quarter: 2017Q1

REPORT INFORMATION
  Report Type: Spontaneous
  Country: US (occurrence: US)
  Receive Date: 20170305
  Receipt Date: 20170305
  Transmission Date: 20170428
  Serious: Yes (Disabling, Other)
  Sender: FDA-Public Use
  Company Number: None

PATIENT
  Sex: Female
  Weight: 67.5 kg

DRUGS (2)
  1. FLUOXETINE HCL 20MG CAPS [Suspect]
     Active Substance: FLUOXETINE HYDROCHLORIDE
     Indication: ANXIETY
     Dosage: QUANTITY:1 CAPSULE(S);?
     Route: 048
     Dates: start: 20160813, end: 20160907
  2. ADDERALL XR 40MG [Concomitant]

REACTIONS (3)
  - Hypersensitivity [None]
  - Product substitution issue [None]
  - Skin exfoliation [None]
